FAERS Safety Report 18740234 (Version 1)
Quarter: 2021Q1

REPORT INFORMATION
  Report Type: Spontaneous
  Country: CN (occurrence: CN)
  Receive Date: 20210114
  Receipt Date: 20210114
  Transmission Date: 20210419
  Serious: Yes (Hospitalization, Other)
  Sender: FDA-Public Use
  Company Number: CN-PFIZER INC-2021015617

PATIENT
  Age: 41 Year
  Sex: Female
  Weight: 51 kg

DRUGS (3)
  1. CYTOSAR [Suspect]
     Active Substance: CYTARABINE
     Indication: ACUTE MYELOID LEUKAEMIA
     Dosage: 150 MG, 1X/DAY
     Route: 041
     Dates: start: 20201221, end: 20201221
  2. IDARUBICIN HYDROCHLORIDE. [Concomitant]
     Active Substance: IDARUBICIN HYDROCHLORIDE
     Indication: SYMPTOMATIC TREATMENT
     Dosage: 10 MG, 1X/DAY
     Route: 041
     Dates: start: 20201223, end: 20201226
  3. CYTOSAR [Suspect]
     Active Substance: CYTARABINE
     Dosage: 150 MG, 1X/DAY
     Route: 041
     Dates: start: 20201223, end: 20201228

REACTIONS (3)
  - Respiratory failure [Unknown]
  - Granulocyte count decreased [Not Recovered/Not Resolved]
  - Pyrexia [Unknown]

NARRATIVE: CASE EVENT DATE: 20201226
